FAERS Safety Report 4783537-5 (Version None)
Quarter: 2005Q3

REPORT INFORMATION
  Report Type: 
  Country: None (occurrence: None)
  Receive Date: 20050928
  Receipt Date: 20050928
  Transmission Date: 20060218
  Serious: Yes (Life-Threatening, Hospitalization, Disabling, Other)
  Sender: FDA-Public Use
  Company Number: None

PATIENT
  Age: 20 Year
  Sex: Female
  Weight: 81.6475 kg

DRUGS (3)
  1. ZOLOFT [Suspect]
     Indication: BULIMIA NERVOSA
     Dosage: ZOLOFT TID
     Dates: start: 20040316, end: 20040626
  2. ZOLOFT [Suspect]
     Indication: DEPRESSION
     Dosage: ZOLOFT TID
     Dates: start: 20040316, end: 20040626
  3. TRAZODONE HCL [Suspect]
     Indication: INSOMNIA
     Dosage: TRAZADONE
     Dates: start: 20040317, end: 20040626

REACTIONS (12)
  - APHASIA [None]
  - BLOOD PRESSURE INCREASED [None]
  - CONVULSION [None]
  - DISTURBANCE IN ATTENTION [None]
  - HYPERREFLEXIA [None]
  - MEMORY IMPAIRMENT [None]
  - PUPILLARY REFLEX IMPAIRED [None]
  - SELF INJURIOUS BEHAVIOUR [None]
  - SELF-INJURIOUS IDEATION [None]
  - SEROTONIN SYNDROME [None]
  - SPEECH DISORDER [None]
  - TACHYCARDIA [None]
